FAERS Safety Report 5441377-8 (Version None)
Quarter: 2007Q3

REPORT INFORMATION
  Report Type: 
  Country: None (occurrence: None)
  Receive Date: 20070903
  Receipt Date: 20070830
  Transmission Date: 20080115
  Serious: Yes (Death, Other)
  Sender: FDA-Public Use
  Company Number: PHRM2007FR02102

PATIENT
  Age: 30 Year
  Sex: Female
  Weight: 135 kg

DRUGS (2)
  1. LEPONEX [Suspect]
     Indication: SCHIZOPHRENIA
     Dosage: 50 MG/DAY
     Route: 048
     Dates: start: 20070619
  2. TERCIAN [Suspect]
     Indication: ANXIETY
     Dosage: 300 MG/DAY
     Route: 048
     Dates: start: 20070619

REACTIONS (4)
  - ANTIPSYCHOTIC DRUG LEVEL ABOVE THERAPEUTIC [None]
  - DEATH [None]
  - DRUG INTERACTION [None]
  - TACHYCARDIA [None]
